FAERS Safety Report 4950394-3 (Version None)
Quarter: 2006Q1

REPORT INFORMATION
  Report Type: 
  Country: None (occurrence: None)
  Receive Date: 20060322
  Receipt Date: 20060313
  Transmission Date: 20060701
  Serious: Yes (Hospitalization)
  Sender: FDA-Public Use
  Company Number: US-ABBOTT-06P-163-0327710-00

PATIENT
  Sex: Male

DRUGS (10)
  1. NORVIR [Suspect]
     Indication: HIV INFECTION
     Route: 048
     Dates: start: 20060104, end: 20060214
  2. TRUVADA [Suspect]
     Indication: HIV INFECTION
     Dosage: 200/300MG
     Route: 048
     Dates: start: 20060104, end: 20060214
  3. REYATAZ [Suspect]
     Indication: HIV INFECTION
     Route: 048
     Dates: start: 20060104, end: 20060214
  4. DAPSONE [Concomitant]
     Indication: ANTIBIOTIC PROPHYLAXIS
     Dates: start: 20060119, end: 20060214
  5. CLINDAMYCIN [Concomitant]
     Indication: TOXOPLASMOSIS
     Dates: start: 20060119, end: 20060214
  6. FOLINIC ACID [Concomitant]
     Indication: TOXOPLASMOSIS
     Dates: start: 20060119, end: 20060214
  7. PYRIMETHAMINE TAB [Concomitant]
     Indication: TOXOPLASMOSIS
     Dates: start: 20060202, end: 20060214
  8. PROCHLORPERAZINE EDISYLATE [Concomitant]
     Indication: NAUSEA
     Dates: start: 20060203, end: 20060214
  9. PROCHLORPERAZINE EDISYLATE [Concomitant]
     Indication: VOMITING
  10. ZITHROMAX [Concomitant]
     Indication: ANTIBIOTIC PROPHYLAXIS
     Dates: start: 20051209, end: 20060214

REACTIONS (3)
  - DEHYDRATION [None]
  - TOXOPLASMOSIS [None]
  - VOMITING [None]
